FAERS Safety Report 9009756 (Version 2)
Quarter: 2013Q1

REPORT INFORMATION
  Report Type: Spontaneous
  Country: US (occurrence: US)
  Receive Date: 20130110
  Receipt Date: 20130131
  Transmission Date: 20140127
  Serious: Yes (Hospitalization, Other)
  Sender: FDA-Public Use
  Company Number: US-PFIZER INC-2013009841

PATIENT
  Age: 42 Year
  Sex: Female
  Weight: 78.01 kg

DRUGS (9)
  1. LYRICA [Suspect]
     Indication: NEURALGIA
     Dosage: 75 MG, 1 TWICE DAILY
     Route: 048
     Dates: start: 201207
  2. CHANTIX [Suspect]
     Dosage: 1 MG, 1 TWICE DAILY
  3. SPIRIVA [Suspect]
     Dosage: UNK
  4. SEROQUEL [Concomitant]
     Dosage: UNK
  5. COUMADIN [Concomitant]
     Dosage: 4 MG, UNK
  6. VENTOLINE [Concomitant]
     Dosage: 90 MG, UNK
  7. CYMBALTA [Concomitant]
     Dosage: 60 MG, UNK
  8. ENABLEX [Concomitant]
     Dosage: UNK
  9. TRAZODONE [Concomitant]
     Dosage: UNK

REACTIONS (5)
  - Pulmonary thrombosis [Unknown]
  - Pneumonia [Unknown]
  - Rib fracture [Unknown]
  - Impaired work ability [Unknown]
  - Local swelling [Unknown]
